FAERS Safety Report 22334203 (Version 2)
Quarter: 2023Q2

REPORT INFORMATION
  Report Type: Spontaneous
  Country: US (occurrence: US)
  Receive Date: 20230517
  Receipt Date: 20230601
  Transmission Date: 20230721
  Serious: Yes (Hospitalization)
  Sender: FDA-Public Use
  Company Number: US-TEVA-2023-US-2886736

PATIENT
  Age: 57 Year
  Sex: Male

DRUGS (4)
  1. FLUCONAZOLE [Interacting]
     Active Substance: FLUCONAZOLE
     Indication: Oral candidiasis
     Route: 065
  2. METHADONE [Interacting]
     Active Substance: METHADONE HYDROCHLORIDE
     Indication: Oral pain
     Dosage: 15 MILLIGRAM DAILY; THREE TIMES DAILY
     Route: 048
  3. GABAPENTIN [Concomitant]
     Active Substance: GABAPENTIN
     Indication: Oral pain
     Dosage: 300 MILLIGRAM DAILY; THREE TIMES DAILY
     Route: 048
  4. ACETAMINOPHEN\HYDROCODONE [Concomitant]
     Active Substance: ACETAMINOPHEN\HYDROCODONE
     Indication: Oral pain
     Dosage: EVERY 4 HOURS AS NEEDED
     Route: 048

REACTIONS (7)
  - Neurotoxicity [Recovering/Resolving]
  - Myoclonus [Recovering/Resolving]
  - Mental status changes [Recovering/Resolving]
  - Insomnia [Recovering/Resolving]
  - Hallucination [Recovering/Resolving]
  - Abnormal dreams [Recovering/Resolving]
  - Drug interaction [Unknown]
